FAERS Safety Report 9604578 (Version 1)
Quarter: 2013Q4

REPORT INFORMATION
  Report Type: Spontaneous
  Country: US (occurrence: GB)
  Receive Date: 20131008
  Receipt Date: 20131008
  Transmission Date: 20140711
  Serious: Yes (Hospitalization, Disabling, Other)
  Sender: FDA-Public Use
  Company Number: GB-FRI-1000049743

PATIENT
  Age: 34 Year
  Sex: Male
  Weight: 56 kg

DRUGS (7)
  1. LINACLOTIDE [Suspect]
     Indication: OESOPHAGEAL DISORDER
     Dosage: 290 MCG
     Dates: start: 20130906, end: 20130908
  2. AMITRIPTYLINE [Concomitant]
     Route: 048
  3. BUSCOPAN [Concomitant]
  4. DOMPERIDONE [Concomitant]
  5. MEBEVERINE [Concomitant]
  6. MIRTAZAPINE [Concomitant]
  7. TRAMADOL [Concomitant]

REACTIONS (7)
  - Syncope [Recovered/Resolved]
  - Tracheal pain [Recovered/Resolved]
  - Dizziness [Recovered/Resolved]
  - Diarrhoea [Recovered/Resolved]
  - Abdominal pain [Recovering/Resolving]
  - Vomiting [Recovering/Resolving]
  - Off label use [Recovered/Resolved]
